FAERS Safety Report 6810825-0 (Version None)
Quarter: 2010Q2

REPORT INFORMATION
  Report Type: 
  Country: None (occurrence: None)
  Receive Date: 20100630
  Receipt Date: 20080520
  Transmission Date: 20101027
  Serious: No
  Sender: FDA-Public Use
  Company Number: US-PFIZER INC-2008043377

PATIENT
  Sex: Female
  Weight: 50.5 kg

DRUGS (7)
  1. NICOTROL [Suspect]
     Indication: SMOKING CESSATION THERAPY
     Dates: start: 20080519
  2. MAGNESIUM CITRATE [Suspect]
  3. BENICAR [Concomitant]
  4. CRESTOR [Concomitant]
  5. CLONAZEPAM [Concomitant]
  6. ZOLOFT [Concomitant]
  7. VITAMIN D [Concomitant]

REACTIONS (3)
  - COUGH [None]
  - NAUSEA [None]
  - THROAT IRRITATION [None]
